FAERS Safety Report 9712118 (Version 2)
Quarter: 2013Q4

REPORT INFORMATION
  Report Type: Spontaneous
  Country: US (occurrence: US)
  Receive Date: 20131126
  Receipt Date: 20131126
  Transmission Date: 20140711
  Serious: Yes (Other)
  Sender: FDA-Public Use
  Company Number: US-BRISTOL-MYERS SQUIBB COMPANY-18849877

PATIENT
  Age: 70 Year
  Sex: Male

DRUGS (6)
  1. BYDUREON [Suspect]
     Dosage: NO OF INJ:2,EXPIRY DATE:APR2014?RECENT INJ:29APR2013
     Route: 058
  2. METFORMIN [Concomitant]
  3. AMARYL [Concomitant]
  4. INSULIN [Concomitant]
  5. SIMVASTATIN [Concomitant]
  6. LISINOPRIL [Concomitant]

REACTIONS (7)
  - Weight decreased [Unknown]
  - Dermatitis contact [Unknown]
  - Skin infection [Unknown]
  - Injection site haemorrhage [Unknown]
  - Blood glucose increased [Unknown]
  - Injection site extravasation [Unknown]
  - Circumstance or information capable of leading to medication error [Unknown]
